FAERS Safety Report 8635022 (Version 3)
Quarter: 2012Q4

REPORT INFORMATION
  Report Type: Report from Study
  Country: FR (occurrence: FR)
  Receive Date: 20120626
  Receipt Date: 20120904
  Transmission Date: 20130627
  Serious: Yes (Other)
  Sender: FDA-Public Use
  Company Number: FR-B.I. PHARMACEUTICALS,INC./RIDGEFIELD-2012-FF-00769FF

PATIENT
  Age: 78 Year
  Sex: Female
  Weight: 66 kg

DRUGS (1)
  1. PRADAXA [Suspect]
     Dosage: 110 mg
     Route: 048
     Dates: start: 20101116, end: 20101121

REACTIONS (1)
  - Deep vein thrombosis [Recovered/Resolved]
